FAERS Safety Report 5192084-0 (Version None)
Quarter: 2006Q4

REPORT INFORMATION
  Report Type: 
  Country: None (occurrence: None)
  Receive Date: 20061227
  Receipt Date: 20061215
  Transmission Date: 20070319
  Serious: Yes (Hospitalization, Other)
  Sender: FDA-Public Use
  Company Number: US-BAYER-200616952BWH

PATIENT
  Age: 71 Year
  Sex: Female

DRUGS (13)
  1. AVELOX [Suspect]
     Indication: SINUSITIS
     Dosage: TOTAL DAILY DOSE: 400 MG  UNIT DOSE: 400 MG
     Route: 048
  2. CLARITHROMYCIN [Suspect]
     Indication: SINUSITIS
  3. KETEK [Suspect]
     Indication: SINUSITIS
     Dates: start: 20060217
  4. MONTELUKAST [Concomitant]
  5. FEXOFENADINE [Concomitant]
  6. LISINOPRIL [Concomitant]
  7. ADVAIR DISKUS 100/50 [Concomitant]
  8. HYDROCHLOROTHIAZIDE [Concomitant]
  9. TRIAMCINOLONE (NASACORT) [Concomitant]
  10. FOSAMAX [Concomitant]
  11. NEXIUM [Concomitant]
  12. MULTI-VITAMIN [Concomitant]
  13. GLUCOSAMINE [Concomitant]

REACTIONS (8)
  - ASTHENIA [None]
  - DECREASED APPETITE [None]
  - FATIGUE [None]
  - HEPATIC FAILURE [None]
  - JAUNDICE [None]
  - LIVER FUNCTION TEST ABNORMAL [None]
  - NAUSEA [None]
  - SINUSITIS [None]
